FAERS Safety Report 7499939-2 (Version None)
Quarter: 2011Q2

REPORT INFORMATION
  Report Type: 
  Country: None (occurrence: None)
  Receive Date: 20110524
  Receipt Date: 20110314
  Transmission Date: 20111010
  Serious: No
  Sender: FDA-Public Use
  Company Number: US-NOVEN-11US001995

PATIENT
  Sex: Female
  Weight: 60.771 kg

DRUGS (1)
  1. DAYTRANA [Suspect]
     Indication: CYTOGENETIC ABNORMALITY
     Dosage: 20 MG, UNKNOWN
     Route: 062
     Dates: start: 20080101

REACTIONS (4)
  - PRODUCT QUALITY ISSUE [None]
  - DRUG ADMINISTRATION ERROR [None]
  - OFF LABEL USE [None]
  - NO ADVERSE EVENT [None]
